FAERS Safety Report 6122981-0 (Version None)
Quarter: 2009Q1

REPORT INFORMATION
  Report Type: 
  Country: None (occurrence: None)
  Receive Date: 20090318
  Receipt Date: 20080227
  Transmission Date: 20090719
  Serious: No
  Sender: FDA-Public Use
  Company Number: US-AMGEN-KDL267449

PATIENT
  Sex: Female

DRUGS (4)
  1. NEULASTA [Suspect]
     Indication: CHEMOTHERAPY
     Dates: start: 20070925
  2. TAXOL [Concomitant]
     Dates: start: 20070901
  3. CISPLATIN [Concomitant]
  4. CARBOPLATIN [Concomitant]

REACTIONS (1)
  - RASH GENERALISED [None]
